FAERS Safety Report 9919648 (Version 1)
Quarter: 2014Q1

REPORT INFORMATION
  Report Type: Spontaneous
  Country: NO (occurrence: NO)
  Receive Date: 20140224
  Receipt Date: 20140224
  Transmission Date: 20141002
  Serious: Yes (Hospitalization)
  Sender: FDA-Public Use
  Company Number: PHHY2014NO018875

PATIENT
  Sex: Female

DRUGS (4)
  1. TEGRETOL [Suspect]
     Indication: PAIN
     Dosage: 200 MG, BID
     Dates: start: 20071127, end: 20080326
  2. TEGRETOL [Suspect]
     Indication: TRIGEMINAL NEURALGIA
  3. CIPRAMIL//CITALOPRAM HYDROCHLORIDE [Concomitant]
     Dosage: 10 MG, QD
  4. FANALGIN                           /00244801/ [Concomitant]
     Dosage: UNK UKN, UNK

REACTIONS (85)
  - General physical health deterioration [Recovered/Resolved]
  - Contusion [Unknown]
  - Neutropenia [Unknown]
  - Erythropoiesis abnormal [Unknown]
  - Platelet count increased [Unknown]
  - Reticulocyte count decreased [Unknown]
  - Serum ferritin increased [Unknown]
  - Blood creatinine increased [Recovering/Resolving]
  - Blood bilirubin abnormal [Unknown]
  - Bacteraemia [Unknown]
  - Blood homocysteine increased [Unknown]
  - Urinary tract infection [Unknown]
  - Respiratory tract infection [Unknown]
  - Serum sickness [Recovered/Resolved]
  - C-reactive protein increased [Recovered/Resolved]
  - Delirium [Recovering/Resolving]
  - Anxiety [Recovering/Resolving]
  - Cluster headache [Recovered/Resolved]
  - Prolonged expiration [Unknown]
  - Insomnia [Recovered/Resolved]
  - Nasopharyngitis [Unknown]
  - Obstructive airways disorder [Recovering/Resolving]
  - Hypokalaemia [Unknown]
  - Productive cough [Unknown]
  - Staphylococcal infection [Unknown]
  - Sepsis [Unknown]
  - Device related infection [Unknown]
  - Skin exfoliation [Unknown]
  - Nasal congestion [Unknown]
  - Obstruction [Not Recovered/Not Resolved]
  - Hepatorenal syndrome [Recovering/Resolving]
  - Gastrointestinal oedema [Unknown]
  - Peritonitis bacterial [Recovering/Resolving]
  - Oedema peripheral [Recovered/Resolved]
  - Graft versus host disease [Unknown]
  - Gallbladder disorder [Unknown]
  - Ascites [Recovered/Resolved]
  - Abdominal distension [Unknown]
  - Haemochromatosis [Unknown]
  - Gallbladder oedema [Unknown]
  - Haemosiderosis [Unknown]
  - Weight decreased [Unknown]
  - Tenderness [Unknown]
  - Peritonitis [Unknown]
  - Hepatic cirrhosis [Recovering/Resolving]
  - Back pain [Unknown]
  - Chest discomfort [Unknown]
  - Lung infection [Recovering/Resolving]
  - Dehydration [Unknown]
  - Arthralgia [Recovered/Resolved]
  - Chest pain [Unknown]
  - Chills [Unknown]
  - Rash [Recovered/Resolved]
  - Hyponatraemia [Unknown]
  - Renal impairment [Recovering/Resolving]
  - Calcium ionised decreased [Unknown]
  - Blood calcium decreased [Unknown]
  - Haemoglobin decreased [Unknown]
  - Pyrexia [Recovered/Resolved]
  - Confusional state [Recovering/Resolving]
  - Hallucination [Recovering/Resolving]
  - Gamma-glutamyltransferase increased [Unknown]
  - Thrombocytopenia [Unknown]
  - Hypertension [Unknown]
  - Urinary retention [Unknown]
  - Abdominal pain [Unknown]
  - Pancytopenia [Unknown]
  - Oedema [Recovered/Resolved]
  - Aplastic anaemia [Unknown]
  - Hypogammaglobulinaemia [Unknown]
  - Blood alkaline phosphatase increased [Unknown]
  - Leukopenia [Unknown]
  - Hepatic failure [Unknown]
  - Dyspnoea [Not Recovered/Not Resolved]
  - Bone marrow failure [Not Recovered/Not Resolved]
  - Fatigue [Unknown]
  - Headache [Unknown]
  - Jaundice [Unknown]
  - Constipation [Recovering/Resolving]
  - Lethargy [Unknown]
  - Diarrhoea [Unknown]
  - Colitis [Unknown]
  - Weight increased [Unknown]
  - Skin haemorrhage [Unknown]
  - Spider naevus [Unknown]
